FAERS Safety Report 18518019 (Version 1)
Quarter: 2020Q4

REPORT INFORMATION
  Report Type: Spontaneous
  Country: US (occurrence: US)
  Receive Date: 20201118
  Receipt Date: 20201118
  Transmission Date: 20210114
  Serious: No
  Sender: FDA-Public Use
  Company Number: US-KYOWAKIRIN-2020BKK018929

PATIENT

DRUGS (1)
  1. SANCUSO [Suspect]
     Active Substance: GRANISETRON
     Indication: PROPHYLAXIS OF NAUSEA AND VOMITING
     Dosage: APPLY NEW PATCH WEEKLY AND WEAR FOR 7 DAYS
     Route: 061
     Dates: start: 2020

REACTIONS (4)
  - Product adhesion issue [Unknown]
  - Intentional product misuse [Unknown]
  - Incorrect dose administered [Unknown]
  - Therapy partial responder [Unknown]

NARRATIVE: CASE EVENT DATE: 2020
